FAERS Safety Report 26027551 (Version 1)
Quarter: 2025Q4

REPORT INFORMATION
  Report Type: Spontaneous
  Country: US (occurrence: None)
  Receive Date: 20251111
  Receipt Date: 20251111
  Transmission Date: 20260118
  Serious: Yes (Other)
  Sender: FDA-CTU
  Company Number: None

PATIENT
  Age: 39 Year
  Sex: Female
  Weight: 117 kg

DRUGS (1)
  1. ALKA SELTZER PLUS COLD [Suspect]
     Active Substance: ASPIRIN\CHLORPHENIRAMINE MALEATE\PHENYLEPHRINE BITARTRATE
     Indication: Nasopharyngitis
     Dates: start: 20251110, end: 20251110

REACTIONS (3)
  - Anxiety [None]
  - Restlessness [None]
  - Heart rate increased [None]

NARRATIVE: CASE EVENT DATE: 20251110
